FAERS Safety Report 17637487 (Version 1)
Quarter: 2020Q2

REPORT INFORMATION
  Report Type: Spontaneous
  Country: DE (occurrence: DE)
  Receive Date: 20200407
  Receipt Date: 20200407
  Transmission Date: 20200713
  Serious: Yes (Other)
  Sender: FDA-Public Use
  Company Number: DE-PFIZER INC-2020138967

PATIENT
  Sex: Female

DRUGS (1)
  1. CYTOTEC [Suspect]
     Active Substance: MISOPROSTOL
     Indication: LABOUR INDUCTION
     Dosage: 1 TABLET EVERY 3-4 HOURS, ONE ON NOVEMBER 29, 2014 AT NOON AND THE LAST ON NOVEMBER 30, 2014 AT
     Route: 064
     Dates: start: 20141129, end: 20141130

REACTIONS (11)
  - Foetal heart rate abnormal [Unknown]
  - Poor feeding infant [Unknown]
  - Hypokinesia neonatal [Unknown]
  - Muscular weakness [Not Recovered/Not Resolved]
  - Neonatal respiratory distress [Unknown]
  - Developmental delay [Recovered/Resolved with Sequelae]
  - Hemiparesis [Recovered/Resolved with Sequelae]
  - Congenital brain damage [Recovered/Resolved with Sequelae]
  - Foetal exposure during pregnancy [Unknown]
  - Cyanosis neonatal [Unknown]
  - Angiopathy [Not Recovered/Not Resolved]

NARRATIVE: CASE EVENT DATE: 20141129
